FAERS Safety Report 14930225 (Version 1)
Quarter: 2018Q2

REPORT INFORMATION
  Report Type: Spontaneous
  Country: GB (occurrence: GB)
  Receive Date: 20180523
  Receipt Date: 20180523
  Transmission Date: 20180711
  Serious: Yes (Hospitalization, Other)
  Sender: FDA-Public Use
  Company Number: GB-TAKEDA-2018TUS017564

PATIENT
  Age: 72 Year
  Sex: Female
  Weight: 95 kg

DRUGS (3)
  1. ADCAL [Concomitant]
     Active Substance: CALCIUM CARBONATE
     Dosage: UNK
  2. ENTYVIO [Suspect]
     Active Substance: VEDOLIZUMAB
     Indication: COLITIS ULCERATIVE
     Dosage: UNK
     Route: 042
     Dates: start: 20180110, end: 20180501
  3. OMEPRAZOLE SODIUM [Concomitant]
     Active Substance: OMEPRAZOLE SODIUM
     Dosage: UNK

REACTIONS (1)
  - Thyroiditis acute [Recovered/Resolved with Sequelae]

NARRATIVE: CASE EVENT DATE: 20180428
